FAERS Safety Report 8029224-1 (Version None)
Quarter: 2012Q1

REPORT INFORMATION
  Report Type: 
  Country: None (occurrence: None)
  Receive Date: 20120106
  Receipt Date: 20120105
  Transmission Date: 20120608
  Serious: Yes (Death, Other)
  Sender: FDA-Public Use
  Company Number: PHHY2011JP102026

PATIENT
  Sex: Female
  Weight: 56 kg

DRUGS (1)
  1. AFINITOR [Suspect]
     Indication: RENAL CELL CARCINOMA
     Dosage: 10 MG, DAILY
     Route: 048
     Dates: start: 20110521, end: 20110709

REACTIONS (8)
  - WHITE BLOOD CELL COUNT INCREASED [None]
  - DYSPNOEA [None]
  - NEOPLASM MALIGNANT [None]
  - PLATELET COUNT DECREASED [None]
  - NEOPLASM PROGRESSION [None]
  - BLOOD LACTATE DEHYDROGENASE INCREASED [None]
  - BLOOD GLUCOSE INCREASED [None]
  - INTERSTITIAL LUNG DISEASE [None]
